FAERS Safety Report 12289685 (Version 1)
Quarter: 2016Q2

REPORT INFORMATION
  Report Type: Spontaneous
  Country: FR (occurrence: FR)
  Receive Date: 20160421
  Receipt Date: 20160421
  Transmission Date: 20160815
  Serious: Yes (Other)
  Sender: FDA-Public Use
  Company Number: FR-ASTRAZENECA-2016SE40565

PATIENT
  Age: 785 Month
  Sex: Female

DRUGS (12)
  1. CARBOPLATIN. [Suspect]
     Active Substance: CARBOPLATIN
     Indication: LUNG ADENOCARCINOMA
     Route: 065
     Dates: start: 201001, end: 201007
  2. TAMOXIFEN [Suspect]
     Active Substance: TAMOXIFEN
     Indication: BREAST CANCER FEMALE
     Route: 048
     Dates: start: 201211, end: 201307
  3. TAXOL [Suspect]
     Active Substance: PACLITAXEL
     Indication: EGFR GENE MUTATION
     Route: 065
     Dates: start: 201001, end: 201007
  4. AVASTIN [Suspect]
     Active Substance: BEVACIZUMAB
     Indication: EGFR GENE MUTATION
     Route: 065
     Dates: start: 201001, end: 201007
  5. AVASTIN [Suspect]
     Active Substance: BEVACIZUMAB
     Indication: LUNG ADENOCARCINOMA
     Route: 065
     Dates: start: 201007, end: 201211
  6. AVASTIN [Suspect]
     Active Substance: BEVACIZUMAB
     Indication: LUNG ADENOCARCINOMA
     Route: 065
     Dates: start: 201001, end: 201007
  7. AVASTIN [Suspect]
     Active Substance: BEVACIZUMAB
     Indication: EGFR GENE MUTATION
     Route: 065
     Dates: start: 201007, end: 201211
  8. ARIMIDEX [Suspect]
     Active Substance: ANASTROZOLE
     Indication: BREAST CANCER FEMALE
     Route: 048
     Dates: start: 201001, end: 201007
  9. CARBOPLATIN. [Suspect]
     Active Substance: CARBOPLATIN
     Indication: EGFR GENE MUTATION
     Route: 065
     Dates: start: 201001, end: 201007
  10. CARBOPLATIN. [Suspect]
     Active Substance: CARBOPLATIN
     Indication: EGFR GENE MUTATION
     Route: 065
  11. TAXOL [Suspect]
     Active Substance: PACLITAXEL
     Indication: LUNG ADENOCARCINOMA
     Route: 065
     Dates: start: 201001, end: 201007
  12. CARBOPLATIN. [Suspect]
     Active Substance: CARBOPLATIN
     Indication: LUNG ADENOCARCINOMA
     Route: 065

REACTIONS (2)
  - Malignant neoplasm progression [Unknown]
  - Drug intolerance [Unknown]

NARRATIVE: CASE EVENT DATE: 201001
